FAERS Safety Report 9667889 (Version 3)
Quarter: 2013Q4

REPORT INFORMATION
  Report Type: Report from Study
  Country: DE (occurrence: DE)
  Receive Date: 20131104
  Receipt Date: 20131114
  Transmission Date: 20140711
  Serious: Yes (Death, Hospitalization)
  Sender: FDA-Public Use
  Company Number: DE-BRISTOL-MYERS SQUIBB COMPANY-19166495

PATIENT
  Age: 65 Year
  Sex: Male

DRUGS (6)
  1. ABATACEPT [Suspect]
     Indication: RHEUMATOID ARTHRITIS
     Dosage: FEB11-FEB11?OCT12-OCT12?10JAN13-10JAN13
     Route: 042
     Dates: start: 201102
  2. METHOTREXATE [Suspect]
     Route: 048
     Dates: start: 20110228, end: 20110822
  3. LEFLUNOMIDE [Suspect]
     Dosage: 10MG SINCE 17-FEB-2012
     Dates: start: 201104, end: 20120813
  4. SULFASALAZINE [Suspect]
     Dosage: SEP10-APR11
     Dates: start: 20110228, end: 20120813
  5. PACLITAXEL [Suspect]
     Indication: BRONCHIAL CARCINOMA
     Dates: start: 20121130
  6. CARBOPLATIN [Suspect]
     Indication: BRONCHIAL CARCINOMA
     Dates: start: 20121130

REACTIONS (7)
  - Bronchial carcinoma [Fatal]
  - Hyponatraemia [Unknown]
  - Clostridium difficile colitis [Unknown]
  - Anaemia [Unknown]
  - Thrombocytopenia [Unknown]
  - General physical health deterioration [Unknown]
  - Pleural effusion [Unknown]
